FAERS Safety Report 21432980 (Version 1)
Quarter: 2022Q4

REPORT INFORMATION
  Report Type: Spontaneous
  Country: IE (occurrence: IE)
  Receive Date: 20221010
  Receipt Date: 20221010
  Transmission Date: 20230113
  Serious: Yes (Other)
  Sender: FDA-Public Use
  Company Number: IE-002147023-NVSC2022IE180377

PATIENT
  Age: 20 Year
  Sex: Male

DRUGS (3)
  1. AIMOVIG [Suspect]
     Active Substance: ERENUMAB-AOOE
     Indication: Migraine
     Dosage: UNK, QMO
     Route: 058
     Dates: start: 20220411, end: 202208
  2. ACETAMINOPHEN [Concomitant]
     Active Substance: ACETAMINOPHEN
     Indication: Product used for unknown indication
     Dosage: 8 DOSAGE FORM, QW
     Route: 065
  3. FROVEX [Concomitant]
     Indication: Product used for unknown indication
     Dosage: UNK, QW (1-2/ WEEK)
     Route: 065

REACTIONS (12)
  - Cellulitis [Unknown]
  - Pruritus [Unknown]
  - Swelling [Unknown]
  - Skin warm [Unknown]
  - Injection site reaction [Unknown]
  - Erythema [Unknown]
  - Skin reaction [Recovered/Resolved]
  - Swelling [Recovered/Resolved]
  - Skin warm [Recovered/Resolved]
  - Injection site extravasation [Unknown]
  - Erythema [Recovered/Resolved]
  - Pruritus [Recovered/Resolved]

NARRATIVE: CASE EVENT DATE: 20220701
